FAERS Safety Report 8250865-0 (Version None)
Quarter: 2012Q1

REPORT INFORMATION
  Report Type: 
  Country: None (occurrence: None)
  Receive Date: 20120328
  Receipt Date: 20120312
  Transmission Date: 20120608
  Serious: Yes (Hospitalization)
  Sender: FDA-Public Use
  Company Number: VAL_00715_2012

PATIENT
  Age: 77 Year
  Sex: Female

DRUGS (3)
  1. CALCIUM (CALCIUM-CALCIUM NOS) [Suspect]
     Indication: OSTEOPOROSIS
     Dosage: DF
  2. ROCALTROL [Suspect]
     Indication: OSTEOPOROSIS
     Dosage: DF ORAL
     Route: 048
  3. DIURETICS (DIURESIS (UNK INGREDIENTS)-DIURETIC NOS) [Suspect]
     Indication: HYPERTENSION
     Dosage: DF ORAL
     Route: 048
     Dates: start: 20110301

REACTIONS (8)
  - RENAL DISORDER [None]
  - HYPERCALCAEMIA [None]
  - MILK-ALKALI SYNDROME [None]
  - HYPERTENSION [None]
  - METABOLIC ALKALOSIS [None]
  - DISORIENTATION [None]
  - BLOOD CREATININE INCREASED [None]
  - DECREASED APPETITE [None]
